FAERS Safety Report 24179091 (Version 6)
Quarter: 2024Q4

REPORT INFORMATION
  Report Type: Spontaneous
  Country: ES (occurrence: ES)
  Receive Date: 20240806
  Receipt Date: 20241021
  Transmission Date: 20250114
  Serious: Yes (Hospitalization, Other)
  Sender: ACCORD
  Company Number: ES-Accord-439075

PATIENT
  Age: 64 Year
  Sex: Male
  Weight: 54.0 kg

DRUGS (26)
  1. FLUOROURACIL [Suspect]
     Active Substance: FLUOROURACIL
     Indication: Squamous cell carcinoma of head and neck
     Dosage: CYCLE 1
     Route: 042
     Dates: start: 20240409, end: 20240413
  2. CISPLATIN [Suspect]
     Active Substance: CISPLATIN
     Indication: Squamous cell carcinoma of head and neck
     Dosage: CYCLE 1-CYCLE 2
     Route: 042
     Dates: start: 20240409, end: 20240430
  3. PEMBROLIZUMAB [Concomitant]
     Active Substance: PEMBROLIZUMAB
     Indication: Squamous cell carcinoma of head and neck
     Dosage: CYCLE 1-CYCLE 2
     Route: 042
     Dates: start: 20240409, end: 20240430
  4. ACETAMINOPHEN [Concomitant]
     Active Substance: ACETAMINOPHEN
     Dates: start: 20240716
  5. TRAMADOL HYDROCHLORIDE [Concomitant]
     Active Substance: TRAMADOL HYDROCHLORIDE
     Dates: start: 2023
  6. MORPHINE SULFATE [Concomitant]
     Active Substance: MORPHINE SULFATE
     Dates: start: 20240408
  7. FAMOTIDINE [Concomitant]
     Active Substance: FAMOTIDINE
     Dates: start: 20240408
  8. MOTILIUM [Concomitant]
     Active Substance: DOMPERIDONE
     Dates: start: 20240408
  9. GRANISETRON [Concomitant]
     Active Substance: GRANISETRON
     Dates: start: 20240408
  10. NALDEMEDINE [Concomitant]
     Active Substance: NALDEMEDINE
     Dates: start: 20240408
  11. Magnogene [Concomitant]
     Dates: start: 20240507
  12. CALCIUM CARBONATE\CHOLECALCIFEROL [Concomitant]
     Active Substance: CALCIUM CARBONATE\CHOLECALCIFEROL
     Dates: start: 20240507
  13. FRESUBIN [Concomitant]
     Active Substance: AMINO ACIDS\DEXTROSE\ELECTROLYTES NOS\SOYBEAN OIL\VITAMINS
     Dates: start: 20240413
  14. AMOXICILLIN\CLAVULANIC ACID [Concomitant]
     Active Substance: AMOXICILLIN\CLAVULANIC ACID
     Dates: start: 20240614, end: 20240618
  15. CIPROFLOXACIN [Concomitant]
     Active Substance: CIPROFLOXACIN
     Dates: start: 20240618, end: 20240716
  16. DEXAMETHASONE [Concomitant]
     Active Substance: DEXAMETHASONE
     Dates: start: 20240626, end: 20240629
  17. NETUPITANT\PALONOSETRON HYDROCHLORIDE [Concomitant]
     Active Substance: NETUPITANT\PALONOSETRON HYDROCHLORIDE
     Dates: start: 20240626, end: 20240626
  18. FERPLEX [Concomitant]
     Dates: start: 20240429
  19. SODIUM LAURYL SULFATE [Concomitant]
     Active Substance: SODIUM LAURYL SULFATE
     Dates: start: 20240408
  20. FLUOROURACIL [Suspect]
     Active Substance: FLUOROURACIL
     Indication: Squamous cell carcinoma of head and neck
     Dosage: CYCLE 2
     Route: 042
     Dates: start: 20240430, end: 20240504
  21. FLUOROURACIL [Suspect]
     Active Substance: FLUOROURACIL
     Indication: Squamous cell carcinoma of head and neck
     Dosage: CYCLE 3
     Route: 042
     Dates: start: 20240528, end: 20240601
  22. FLUOROURACIL [Suspect]
     Active Substance: FLUOROURACIL
     Indication: Squamous cell carcinoma of head and neck
     Dosage: CYCLE 4
     Route: 042
     Dates: start: 20240626, end: 20240630
  23. PEMBROLIZUMAB [Concomitant]
     Active Substance: PEMBROLIZUMAB
     Indication: Squamous cell carcinoma of head and neck
     Dosage: CYCLE 3
     Route: 042
     Dates: start: 20240528, end: 20240528
  24. PEMBROLIZUMAB [Concomitant]
     Active Substance: PEMBROLIZUMAB
     Indication: Squamous cell carcinoma of head and neck
     Dosage: CYCLE 4
     Route: 042
     Dates: start: 20240626, end: 20240626
  25. CISPLATIN [Suspect]
     Active Substance: CISPLATIN
     Indication: Squamous cell carcinoma of head and neck
     Dosage: CYCLE 3
     Route: 042
     Dates: start: 20240528, end: 20240528
  26. CISPLATIN [Suspect]
     Active Substance: CISPLATIN
     Indication: Squamous cell carcinoma of head and neck
     Dosage: CYCLE 4
     Route: 042
     Dates: start: 20240626, end: 20240626

REACTIONS (3)
  - Oral infection [Recovered/Resolved]
  - Febrile neutropenia [Recovered/Resolved]
  - Disease progression [Unknown]

NARRATIVE: CASE EVENT DATE: 20240716
